FAERS Safety Report 4855217-9 (Version None)
Quarter: 2005Q4

REPORT INFORMATION
  Report Type: 
  Country: None (occurrence: None)
  Receive Date: 20051214
  Receipt Date: 20051130
  Transmission Date: 20060501
  Serious: Yes (Death)
  Sender: FDA-Public Use
  Company Number: US200511000054

PATIENT
  Age: 47 Year
  Sex: Female
  Weight: 94.3 kg

DRUGS (7)
  1. CYMBALTA [Suspect]
     Indication: DEPRESSION
     Dosage: SEE IMAGE
     Dates: start: 20050518
  2. CYMBALTA [Suspect]
     Indication: DEPRESSION
     Dosage: SEE IMAGE
     Dates: start: 20050922
  3. SEROQUEL [Concomitant]
  4. DOXEPIN HCL [Concomitant]
  5. LOPERAMIDE HCL [Concomitant]
  6. ASPIRIN [Concomitant]
  7. ACIPHEX [Concomitant]

REACTIONS (1)
  - HYPOMANIA [None]
